FAERS Safety Report 9523839 (Version 1)
Quarter: 2013Q3

REPORT INFORMATION
  Report Type: Spontaneous
  Country: US (occurrence: None)
  Receive Date: 20130912
  Receipt Date: 20130912
  Transmission Date: 20140515
  Serious: Yes (Other)
  Sender: FDA-Public Use
  Company Number: 001361748A

PATIENT
  Age: 14 Year
  Sex: Female

DRUGS (3)
  1. PROACTIV RENEWING CLEANSER [Suspect]
     Indication: ACNE
     Dosage: TWICE DERMAL
     Dates: start: 201208, end: 20120911
  2. PROACTIV REPAIRING TREATMENT [Suspect]
     Indication: ACNE
     Dosage: TWICE DERMAL
     Dates: start: 201208, end: 20120911
  3. PROACTIV REFINING MASK [Suspect]
     Indication: ACNE
     Dosage: TWICE DERMAL
     Dates: start: 201208, end: 20120911

REACTIONS (4)
  - Rash [None]
  - Eye infection [None]
  - Skin exfoliation [None]
  - Staphylococcal impetigo [None]
